FAERS Safety Report 9551325 (Version 1)
Quarter: 2013Q3

REPORT INFORMATION
  Report Type: Spontaneous
  Country: US (occurrence: None)
  Receive Date: 20130923
  Receipt Date: 20130923
  Transmission Date: 20140515
  Serious: Yes (Hospitalization)
  Sender: FDA-Public Use
  Company Number: None

PATIENT
  Age: 26 Year
  Sex: Female
  Weight: 79.38 kg

DRUGS (1)
  1. HUMIRA [Suspect]
     Indication: UVEITIS
     Dosage: INJECTION
     Route: 058

REACTIONS (5)
  - Paraesthesia [None]
  - Hypoaesthesia [None]
  - Nausea [None]
  - Retching [None]
  - Abdominal pain upper [None]
